FAERS Safety Report 20216641 (Version 1)
Quarter: 2021Q4

REPORT INFORMATION
  Report Type: Spontaneous
  Country: US (occurrence: None)
  Receive Date: 20211221
  Receipt Date: 20211221
  Transmission Date: 20220303
  Serious: Yes (Death)
  Sender: FDA-Public Use
  Company Number: None

PATIENT
  Age: 78 Year
  Sex: Male

DRUGS (1)
  1. PEMBROLIZUMAB [Suspect]
     Active Substance: PEMBROLIZUMAB
     Indication: Non-small cell lung cancer metastatic
     Dates: start: 20210722, end: 20210908

REACTIONS (11)
  - Dysphagia [None]
  - Chest pain [None]
  - Myocarditis [None]
  - Hepatitis [None]
  - Myasthenia gravis crisis [None]
  - Cardiac arrest [None]
  - Palpitations [None]
  - Electrocardiogram abnormal [None]
  - Blood urea increased [None]
  - Blood creatine increased [None]
  - Ejection fraction decreased [None]

NARRATIVE: CASE EVENT DATE: 20210908
